FAERS Safety Report 7982846-6 (Version None)
Quarter: 2011Q4

REPORT INFORMATION
  Report Type: 
  Country: None (occurrence: None)
  Receive Date: 20111215
  Receipt Date: 20111205
  Transmission Date: 20120403
  Serious: Yes (Hospitalization)
  Sender: FDA-Public Use
  Company Number: US-BAYER-2011-081958

PATIENT
  Age: 34 Year
  Sex: Female

DRUGS (11)
  1. YASMIN [Suspect]
     Indication: PREMENSTRUAL SYNDROME
     Dosage: UNK
     Dates: start: 20080324, end: 20100214
  2. YASMIN [Suspect]
     Indication: CONTRACEPTION
     Dosage: UNK
     Dates: start: 20070317, end: 20070401
  3. YASMIN [Suspect]
  4. YAZ [Suspect]
  5. DROSPIRENONE AND ETHINYL ESTRADIOL [Suspect]
     Dosage: UNK
     Dates: start: 20070317, end: 20070401
  6. YAZ [Suspect]
     Indication: PREMENSTRUAL SYNDROME
     Dosage: UNK
     Dates: start: 20080324, end: 20100214
  7. YAZ [Suspect]
     Indication: CONTRACEPTION
     Dosage: UNK
     Dates: start: 20070317, end: 20070401
  8. DROSPIRENONE AND ETHINYL ESTRADIOL [Suspect]
     Dosage: UNK
     Dates: start: 20080324, end: 20100214
  9. ACETAMINOPHEN [Concomitant]
     Indication: HEADACHE
     Dosage: 2 TABLETS
     Route: 048
  10. MOTRIN [Concomitant]
  11. FLEXERIL [Concomitant]

REACTIONS (7)
  - POST PROCEDURAL HAEMORRHAGE [None]
  - CEREBROVASCULAR ACCIDENT [None]
  - TRANSIENT ISCHAEMIC ATTACK [None]
  - AMNESIA [None]
  - INJURY [None]
  - UTERINE INFECTION [None]
  - PAIN [None]
